FAERS Safety Report 11895327 (Version 1)
Quarter: 2016Q1

REPORT INFORMATION
  Report Type: Spontaneous
  Country: US (occurrence: None)
  Receive Date: 20160106
  Receipt Date: 20160106
  Transmission Date: 20160526
  Serious: No
  Sender: FDA-Public Use
  Company Number: None

PATIENT

DRUGS (3)
  1. NSS 250ML [Suspect]
     Active Substance: SODIUM CHLORIDE
  2. MAGNESIUM SULFATE. [Suspect]
     Active Substance: MAGNESIUM SULFATE
  3. NSS 150ML [Suspect]
     Active Substance: SODIUM CHLORIDE

REACTIONS (3)
  - Product preparation error [None]
  - Incorrect drug administration duration [None]
  - Product label confusion [None]
